FAERS Safety Report 25550171 (Version 1)
Quarter: 2025Q3

REPORT INFORMATION
  Report Type: Spontaneous
  Country: US (occurrence: US)
  Receive Date: 20250714
  Receipt Date: 20250714
  Transmission Date: 20251020
  Serious: No
  Sender: MYLAN
  Company Number: US-MYLANLABS-2025M1055778

PATIENT
  Age: 68 Year
  Sex: Female

DRUGS (4)
  1. WIXELA INHUB [Suspect]
     Active Substance: FLUTICASONE PROPIONATE\SALMETEROL XINAFOATE
     Indication: Asthma
     Dosage: 500/50 MICROGRAM, BID (TWICE A DAY)
     Dates: start: 202505
  2. WIXELA INHUB [Suspect]
     Active Substance: FLUTICASONE PROPIONATE\SALMETEROL XINAFOATE
     Dosage: 500/50 MICROGRAM, BID (TWICE A DAY)
     Route: 055
     Dates: start: 202505
  3. WIXELA INHUB [Suspect]
     Active Substance: FLUTICASONE PROPIONATE\SALMETEROL XINAFOATE
     Dosage: 500/50 MICROGRAM, BID (TWICE A DAY)
     Route: 055
     Dates: start: 202505
  4. WIXELA INHUB [Suspect]
     Active Substance: FLUTICASONE PROPIONATE\SALMETEROL XINAFOATE
     Dosage: 500/50 MICROGRAM, BID (TWICE A DAY)
     Dates: start: 202505

REACTIONS (3)
  - Circumstance or information capable of leading to device use error [Unknown]
  - Device malfunction [Unknown]
  - Device mechanical issue [Unknown]

NARRATIVE: CASE EVENT DATE: 20250601
